FAERS Safety Report 23260535 (Version 1)
Quarter: 2023Q4

REPORT INFORMATION
  Report Type: Spontaneous
  Country: US (occurrence: US)
  Receive Date: 20231205
  Receipt Date: 20231205
  Transmission Date: 20240110
  Serious: Yes (Other)
  Sender: FDA-Public Use
  Company Number: US-drreddys-LIT/USA/23/0187755

PATIENT
  Age: 46 Year
  Sex: Male

DRUGS (3)
  1. LENALIDOMIDE [Suspect]
     Active Substance: LENALIDOMIDE
     Indication: Lichen myxoedematosus
  2. BORTEZOMIB [Suspect]
     Active Substance: BORTEZOMIB
     Indication: Lichen myxoedematosus
  3. MELPHALAN [Suspect]
     Active Substance: MELPHALAN
     Indication: Product used for unknown indication
     Dosage: HIGH DOSE

REACTIONS (4)
  - Treatment failure [Unknown]
  - Renal disorder [Unknown]
  - Lung disorder [Unknown]
  - Product use in unapproved indication [Unknown]
